FAERS Safety Report 14430956 (Version 1)
Quarter: 2018Q1

REPORT INFORMATION
  Report Type: Spontaneous
  Country: FR (occurrence: FR)
  Receive Date: 20180124
  Receipt Date: 20180124
  Transmission Date: 20180509
  Serious: Yes (Other)
  Sender: FDA-Public Use
  Company Number: FR-SUN PHARMACEUTICAL INDUSTRIES LTD-2018RR-160675

PATIENT
  Age: 91 Year
  Sex: Female

DRUGS (3)
  1. LANSOPRAZOLE. [Suspect]
     Active Substance: LANSOPRAZOLE
     Indication: ULCER
     Dosage: 1 CP (1)
     Route: 048
     Dates: start: 20171128, end: 20171130
  2. TIAPRIDAL, SOLUTION BUVABLE EN GOUTTES [Suspect]
     Active Substance: TIAPRIDE HYDROCHLORIDE
     Indication: MENTAL DISORDER
     Dosage: 25 MG, QD
     Route: 048
     Dates: start: 20171130, end: 20171203
  3. RISPERDALORO 0,5 MG, COMPRIM? ORODISPERSIBLE [Suspect]
     Active Substance: RISPERIDONE
     Indication: MENTAL DISORDER
     Dosage: 1 CP (1)
     Route: 048
     Dates: start: 20171117, end: 20171129

REACTIONS (1)
  - Hepatocellular injury [Recovering/Resolving]

NARRATIVE: CASE EVENT DATE: 20171204
